FAERS Safety Report 24282020 (Version 1)
Quarter: 2024Q3

REPORT INFORMATION
  Report Type: Spontaneous
  Country: CN (occurrence: CN)
  Receive Date: 20240904
  Receipt Date: 20240904
  Transmission Date: 20241017
  Serious: Yes (Hospitalization, Other)
  Sender: PFIZER
  Company Number: CN-PFIZER INC-PV202400114173

PATIENT
  Age: 29 Year
  Sex: Female
  Weight: 40 kg

DRUGS (4)
  1. METHOTREXATE SODIUM [Suspect]
     Active Substance: METHOTREXATE SODIUM
     Indication: Benign hydatidiform mole
     Dosage: 260 MG, 1X/DAY
     Route: 041
     Dates: start: 20240717, end: 20240717
  2. METHOTREXATE SODIUM [Suspect]
     Active Substance: METHOTREXATE SODIUM
     Dosage: 130 MG, 1X/DAY
     Route: 040
     Dates: start: 20240717, end: 20240717
  3. DACTINOMYCIN [Suspect]
     Active Substance: DACTINOMYCIN
     Indication: Benign hydatidiform mole
     Dosage: 0.5 MG, 1X/DAY
     Route: 041
     Dates: start: 20240717, end: 20240718
  4. ETOPOSIDE [Suspect]
     Active Substance: ETOPOSIDE
     Indication: Benign hydatidiform mole
     Dosage: 0.13 G, 1X/DAY
     Route: 041
     Dates: start: 20240717, end: 20240718

REACTIONS (3)
  - Myelosuppression [Recovering/Resolving]
  - Asthenia [Recovering/Resolving]
  - Nausea [Recovering/Resolving]

NARRATIVE: CASE EVENT DATE: 20240719
